FAERS Safety Report 24223301 (Version 1)
Quarter: 2024Q3

REPORT INFORMATION
  Report Type: Spontaneous
  Country: US (occurrence: US)
  Receive Date: 20240819
  Receipt Date: 20240819
  Transmission Date: 20241016
  Serious: Yes (Other)
  Sender: ANI
  Company Number: US-ANIPHARMA-2023-US-043836

PATIENT
  Age: 70 Year
  Sex: Female

DRUGS (1)
  1. ARIMIDEX [Suspect]
     Active Substance: ANASTROZOLE
     Indication: Breast cancer
     Dosage: UNK DOSE, ONCE A DAY
     Route: 048
     Dates: start: 2013

REACTIONS (5)
  - Breast cancer recurrent [Unknown]
  - Bone disorder [Unknown]
  - Bone scan abnormal [Unknown]
  - Drug ineffective [Unknown]
  - Tumour marker increased [Unknown]

NARRATIVE: CASE EVENT DATE: 20230808
